FAERS Safety Report 10564724 (Version 2)
Quarter: 2014Q4

REPORT INFORMATION
  Report Type: Report from Study
  Country: DE (occurrence: DE)
  Receive Date: 20141105
  Receipt Date: 20141105
  Transmission Date: 20150529
  Serious: Yes (Hospitalization)
  Sender: FDA-Public Use
  Company Number: DE-ROCHE-1420683

PATIENT
  Age: 51 Year
  Sex: Female
  Weight: 63.5 kg

DRUGS (5)
  1. BEVACIZUMAB [Suspect]
     Active Substance: BEVACIZUMAB
     Indication: OVARIAN CANCER RECURRENT
     Dosage: DATE OF LAST DOSE PRIOR TO SAE: 20/OCT/2014.
     Route: 042
     Dates: start: 20140703
  2. DOXORUBICIN [Suspect]
     Active Substance: DOXORUBICIN
     Indication: OVARIAN CANCER RECURRENT
     Dosage: LAST DOSE PRIOR TO FIRST EPISODE OF  SAE: 04/JUNE/2014
     Route: 042
     Dates: start: 20140604
  3. CARBOPLATIN. [Suspect]
     Active Substance: CARBOPLATIN
     Dosage: DATE OF LAST DOSE PRIOR TO SECOND EPISODE OF SAE: 20/OCT/2014.
     Route: 042
     Dates: start: 20140604
  4. DOXORUBICIN [Suspect]
     Active Substance: DOXORUBICIN
     Dosage: LAST DOSE PRIOR TO SECOND EPISODE OF  SAE: 20/OCT/2014
     Route: 042
     Dates: start: 20140604
  5. CARBOPLATIN. [Suspect]
     Active Substance: CARBOPLATIN
     Indication: OVARIAN CANCER RECURRENT
     Dosage: DATE OF LAST DOSE PRIOR TO FIRST EPISODE OF SAE: 04/JUN/2014
     Route: 042
     Dates: start: 20140604

REACTIONS (2)
  - General physical health deterioration [Recovered/Resolved]
  - General physical health deterioration [Recovered/Resolved]

NARRATIVE: CASE EVENT DATE: 20140614
